FAERS Safety Report 7348072-9 (Version None)
Quarter: 2011Q1

REPORT INFORMATION
  Report Type: 
  Country: None (occurrence: None)
  Receive Date: 20110311
  Receipt Date: 20110303
  Transmission Date: 20110831
  Serious: Yes (Life-Threatening, Hospitalization, Disabling)
  Sender: FDA-Public Use
  Company Number: US-JNJFOC-20090206413

PATIENT
  Sex: Female
  Weight: 15.3 kg

DRUGS (6)
  1. CHILDREN'S MOTRIN [Suspect]
     Indication: PYREXIA
  2. CHILDREN'S MOTRIN [Suspect]
     Indication: COUGH
  3. CHILDREN'S TYLENOL SUSPENSION [Suspect]
  4. SULFUR [Suspect]
     Indication: ILL-DEFINED DISORDER
  5. ERYTHROMYCIN [Suspect]
     Indication: ILL-DEFINED DISORDER
  6. CHILDREN'S TYLENOL SUSPENSION [Suspect]
     Indication: PRODUCT USED FOR UNKNOWN INDICATION

REACTIONS (2)
  - TOXIC EPIDERMAL NECROLYSIS [None]
  - BLINDNESS [None]
